FAERS Safety Report 17505292 (Version 1)
Quarter: 2020Q1

REPORT INFORMATION
  Report Type: Spontaneous
  Country: US (occurrence: US)
  Receive Date: 20200306
  Receipt Date: 20200306
  Transmission Date: 20200409
  Serious: Yes (Hospitalization, Other)
  Sender: FDA-Public Use
  Company Number: US-009507513-2003USA000477

PATIENT
  Age: 20 Year
  Sex: Female
  Weight: 113.38 kg

DRUGS (2)
  1. NEXPLANON [Suspect]
     Active Substance: ETONOGESTREL
     Dosage: 1 IMPLANT, (ONE EVERY THREE YEARS), INSERTED ABOVE THE ELBOW, ON THE OUTER PART OF ARM
     Dates: start: 20200212
  2. NEXPLANON [Suspect]
     Active Substance: ETONOGESTREL
     Dosage: 1 IMPLANT
     Route: 059
     Dates: start: 20170212, end: 20200212

REACTIONS (8)
  - Implant site pain [Not Recovered/Not Resolved]
  - Complication of device removal [Recovered/Resolved]
  - Malaise [Not Recovered/Not Resolved]
  - Pain in extremity [Not Recovered/Not Resolved]
  - Device difficult to use [Recovered/Resolved]
  - Device deployment issue [Not Recovered/Not Resolved]
  - Suicide attempt [Unknown]
  - Contusion [Not Recovered/Not Resolved]

NARRATIVE: CASE EVENT DATE: 202002
